FAERS Safety Report 5674911-3 (Version None)
Quarter: 2008Q1

REPORT INFORMATION
  Report Type: 
  Country: None (occurrence: None)
  Receive Date: 20080320
  Receipt Date: 20080312
  Transmission Date: 20080703
  Serious: Yes (Hospitalization)
  Sender: FDA-Public Use
  Company Number: GB-ROCHE-552899

PATIENT
  Age: 73 Year
  Sex: Female
  Weight: 114.3 kg

DRUGS (8)
  1. ORLISTAT [Suspect]
     Indication: OBESITY
     Route: 048
     Dates: start: 20071127
  2. SULFASALAZINE [Concomitant]
     Indication: ARTHRITIS
     Route: 048
  3. NAPROXIN [Concomitant]
     Indication: ARTHRITIS
     Route: 048
  4. TRAMADOL HCL [Concomitant]
     Indication: ANALGESIA
     Dosage: TAKEN AS REQUIRED
     Route: 048
  5. EPROSARTAN [Concomitant]
     Indication: HYPERTENSION
     Route: 048
  6. INDAPAMIDE [Concomitant]
     Indication: HYPERTENSION
     Route: 048
  7. CLOPIDOGREL [Concomitant]
     Indication: ANTICOAGULANT THERAPY
     Route: 048
  8. ROSUVASTATIN [Concomitant]
     Route: 048

REACTIONS (1)
  - CARDIOVASCULAR DISORDER [None]
